FAERS Safety Report 4562951-7 (Version None)
Quarter: 2005Q1

REPORT INFORMATION
  Report Type: 
  Country: None (occurrence: None)
  Receive Date: 20050121
  Receipt Date: 20041227
  Transmission Date: 20050727
  Serious: Yes (Hospitalization)
  Sender: FDA-Public Use
  Company Number: JP_040603275

PATIENT
  Age: 66 Year
  Sex: Male
  Weight: 51 kg

DRUGS (4)
  1. ONCOVIN [Suspect]
     Indication: LYMPHOMA
     Dosage: 1.6 MG OTHER
     Route: 050
     Dates: start: 20040409, end: 20040409
  2. CYCLOPHOSPHAMIDE [Concomitant]
  3. ADRIACIN                (DOXORUBICIN HYDROCHLORIDE) [Concomitant]
  4. PREDNISOLONE [Concomitant]

REACTIONS (1)
  - CHOLESTASIS [None]
